FAERS Safety Report 5077746-8 (Version None)
Quarter: 2006Q3

REPORT INFORMATION
  Report Type: 
  Country: None (occurrence: None)
  Receive Date: 20060810
  Receipt Date: 20060803
  Transmission Date: 20061208
  Serious: Yes (Hospitalization)
  Sender: FDA-Public Use
  Company Number: US-ABBOTT-06P-163-0339491-00

PATIENT
  Age: 24 Year
  Sex: Male

DRUGS (1)
  1. DEPAKOTE ER [Suspect]
     Indication: BIPOLAR DISORDER
     Route: 048
     Dates: start: 20051201

REACTIONS (4)
  - HYPERSENSITIVITY [None]
  - MANIA [None]
  - PRURITUS [None]
  - SKIN EXFOLIATION [None]
